FAERS Safety Report 9861964 (Version 2)
Quarter: 2014Q1

REPORT INFORMATION
  Report Type: Spontaneous
  Country: HR (occurrence: HR)
  Receive Date: 20140203
  Receipt Date: 20140307
  Transmission Date: 20141002
  Serious: Yes (Other)
  Sender: FDA-Public Use
  Company Number: HR-ELI_LILLY_AND_COMPANY-HR201401009476

PATIENT
  Sex: Female

DRUGS (5)
  1. ZYPADHERA [Suspect]
     Indication: PRODUCT USED FOR UNKNOWN INDICATION
     Dosage: 300 MG, EVERY 2 WEEKS
     Route: 030
  2. ZOLOFT [Concomitant]
     Indication: PRODUCT USED FOR UNKNOWN INDICATION
     Dosage: 100 MG, UNKNOWN
     Route: 065
  3. MIRZATEN [Concomitant]
     Indication: PRODUCT USED FOR UNKNOWN INDICATION
     Dosage: 30 MG, UNKNOWN
     Route: 065
  4. LAMEPTIL [Concomitant]
     Indication: PRODUCT USED FOR UNKNOWN INDICATION
     Dosage: 50 MG, TID
     Route: 065
  5. HELEX [Concomitant]
     Indication: PRODUCT USED FOR UNKNOWN INDICATION
     Dosage: UNK UNK, UNKNOWN
     Route: 065

REACTIONS (2)
  - Vertigo [Recovered/Resolved]
  - Hypotension [Recovered/Resolved]
